FAERS Safety Report 5798849-6 (Version None)
Quarter: 2008Q2

REPORT INFORMATION
  Report Type: 
  Country: None (occurrence: None)
  Receive Date: 20080630
  Receipt Date: 20080620
  Transmission Date: 20081010
  Serious: Yes (Hospitalization)
  Sender: FDA-Public Use
  Company Number: 2007-01813

PATIENT
  Age: 56 Year
  Sex: Male
  Weight: 108 kg

DRUGS (2)
  1. VELCADE [Suspect]
     Indication: MULTIPLE MYELOMA
     Dosage: 3 MG, INTRAVENOUS
     Route: 042
     Dates: start: 20070427, end: 20070709
  2. DEXAMETHASONE TAB [Suspect]
     Indication: MULTIPLE MYELOMA
     Dosage: 20 MG, INTRAVENOUS
     Route: 042
     Dates: start: 20070427, end: 20070710

REACTIONS (5)
  - COLD SWEAT [None]
  - HYPERHIDROSIS [None]
  - LUNG INFECTION [None]
  - RASH PUSTULAR [None]
  - SKIN INFECTION [None]
